FAERS Safety Report 9342973 (Version 2)
Quarter: 2013Q3

REPORT INFORMATION
  Report Type: Report from Study
  Country: RU (occurrence: RU)
  Receive Date: 20130611
  Receipt Date: 20130703
  Transmission Date: 20140515
  Serious: Yes (Other)
  Sender: FDA-Public Use
  Company Number: PHHY2013RU058870

PATIENT
  Age: 62 Year
  Sex: Female

DRUGS (2)
  1. ACLASTA [Suspect]
     Dosage: UNK
     Route: 042
     Dates: start: 2011
  2. ACLASTA [Suspect]
     Dosage: UNK
     Route: 042
     Dates: start: 2012

REACTIONS (5)
  - Thoracic vertebral fracture [Unknown]
  - Bone disorder [Unknown]
  - Chest pain [Unknown]
  - Neck pain [Unknown]
  - Pain [Unknown]
